FAERS Safety Report 12784350 (Version 1)
Quarter: 2016Q3

REPORT INFORMATION
  Report Type: Spontaneous
  Country: JP (occurrence: JP)
  Receive Date: 20160927
  Receipt Date: 20160927
  Transmission Date: 20161109
  Serious: Yes (Other)
  Sender: FDA-Public Use
  Company Number: JP-BEH-IGH/03/05/LIT

PATIENT
  Age: 70 Year
  Sex: Female

DRUGS (1)
  1. IMMUNE GLOBULIN INTRAVENOUS (HUMAN) [Suspect]
     Active Substance: HUMAN IMMUNOGLOBULIN G
     Indication: SJOGREN^S SYNDROME
     Dosage: DAILY DOSE QUANTITY: .4, DAILY DOSE UNIT: G/KG B.W.
     Route: 042

REACTIONS (1)
  - Neutropenia [Recovered/Resolved]
